FAERS Safety Report 9558332 (Version 2)
Quarter: 2013Q4

REPORT INFORMATION
  Report Type: Spontaneous
  Country: AT (occurrence: AT)
  Receive Date: 20130926
  Receipt Date: 20131018
  Transmission Date: 20140711
  Serious: Yes (Other)
  Sender: FDA-Public Use
  Company Number: AT-009507513-1309AUT009518

PATIENT
  Age: 55 Year
  Sex: Male

DRUGS (3)
  1. VICTRELIS [Suspect]
     Dosage: UNK
     Route: 048
     Dates: start: 20110825
  2. INTERFERON ALFA-2B [Suspect]
  3. RIBAVIRIN [Suspect]
     Route: 048

REACTIONS (4)
  - Polyneuropathy [Unknown]
  - Anaemia [Unknown]
  - Neutropenia [Unknown]
  - Hepatitis C [Unknown]
